FAERS Safety Report 20557301 (Version 1)
Quarter: 2022Q1

REPORT INFORMATION
  Report Type: Spontaneous
  Country: GB (occurrence: GB)
  Receive Date: 20220307
  Receipt Date: 20220307
  Transmission Date: 20220423
  Serious: Yes (Other)
  Sender: FDA-Public Use
  Company Number: GB-MHRA-TPP25116123C8458537YC1645449841130

PATIENT
  Age: 59 Year
  Sex: Male
  Weight: 76 kg

DRUGS (5)
  1. NAPROXEN [Suspect]
     Active Substance: NAPROXEN
     Indication: Product used for unknown indication
     Dosage: 500 MILLIGRAM (ONE TABLET TO BE TAKEN TWICE A DAY WHEN REQUIRE...)
     Route: 065
     Dates: start: 20220202, end: 20220221
  2. BUPIVACAINE [Concomitant]
     Active Substance: BUPIVACAINE
     Indication: Product used for unknown indication
     Dosage: UNK
     Route: 065
     Dates: start: 20220128, end: 20220129
  3. FLUCLOXACILLIN [Concomitant]
     Active Substance: FLUCLOXACILLIN
     Indication: Product used for unknown indication
     Dosage: 1 DOSAGE FORM, FOUR TIMES/DAY
     Route: 065
     Dates: start: 20220202, end: 20220209
  4. LIDOCAINE [Concomitant]
     Active Substance: LIDOCAINE
     Indication: Product used for unknown indication
     Dosage: 6 MILLILITER (6MLS FOR LOCAL)
     Route: 065
     Dates: start: 20220128, end: 20220129
  5. OMEPRAZOLE [Concomitant]
     Active Substance: OMEPRAZOLE
     Indication: Product used for unknown indication
     Dosage: UNK (ONE CAPSULE TO BE TAKEN ONCE A DAY TO REDUCE ST...)
     Route: 065
     Dates: start: 20220202

REACTIONS (4)
  - Angioedema [Unknown]
  - Hypersensitivity [Recovering/Resolving]
  - Mouth swelling [Unknown]
  - Oropharyngeal discomfort [Unknown]

NARRATIVE: CASE EVENT DATE: 20220221
